FAERS Safety Report 4824169-X (Version None)
Quarter: 2005Q4

REPORT INFORMATION
  Report Type: 
  Country: None (occurrence: None)
  Receive Date: 20051108
  Receipt Date: 20051031
  Transmission Date: 20060501
  Serious: Yes (Other)
  Sender: FDA-Public Use
  Company Number: 200513210JP

PATIENT
  Age: 52 Year
  Sex: Male
  Weight: 72 kg

DRUGS (7)
  1. ARAVA [Suspect]
     Indication: RHEUMATOID ARTHRITIS
     Dosage: 20 MG/DAY PO
     Route: 048
  2. PREDONINE [Concomitant]
  3. LOXONIN [Concomitant]
  4. RHEUMATREX [Concomitant]
  5. VOLTAREN [Concomitant]
  6. KETOPROFEN [Concomitant]
  7. SELTOUCH [Concomitant]

REACTIONS (4)
  - ALANINE AMINOTRANSFERASE INCREASED [None]
  - ASPARTATE AMINOTRANSFERASE INCREASED [None]
  - BLOOD LACTATE DEHYDROGENASE INCREASED [None]
  - HEPATIC FUNCTION ABNORMAL [None]
